FAERS Safety Report 4889213-2 (Version None)
Quarter: 2006Q1

REPORT INFORMATION
  Report Type: 
  Country: None (occurrence: None)
  Receive Date: 20060120
  Receipt Date: 20060120
  Transmission Date: 20060701
  Serious: Yes (Other)
  Sender: FDA-Public Use
  Company Number: None

PATIENT
  Age: 74 Year
  Sex: Male
  Weight: 69.8539 kg

DRUGS (1)
  1. NIFEDIPINE [Suspect]
     Indication: ANGINA PECTORIS
     Dosage: 60 MG ONE PER DAY
     Dates: start: 20051101, end: 20051201

REACTIONS (2)
  - ANGINA PECTORIS [None]
  - PHARMACEUTICAL PRODUCT COMPLAINT [None]
